FAERS Safety Report 10402288 (Version 2)
Quarter: 2014Q3

REPORT INFORMATION
  Report Type: Report from Study
  Country: BR (occurrence: BR)
  Receive Date: 20140822
  Receipt Date: 20140916
  Transmission Date: 20150326
  Serious: Yes (Hospitalization, Other)
  Sender: FDA-Public Use
  Company Number: PHHY2014BR101743

PATIENT
  Age: 51 Year
  Sex: Female
  Weight: 111 kg

DRUGS (6)
  1. FLUOXETINE [Concomitant]
     Active Substance: FLUOXETINE\FLUOXETINE HYDROCHLORIDE
     Indication: DEPRESSION
  2. ORLISTAT [Concomitant]
     Active Substance: ORLISTAT
     Indication: WEIGHT INCREASED
     Dosage: 1 DF, AT LUNCH
     Dates: start: 20140812
  3. SANDOSTATIN LAR DEPOT [Suspect]
     Active Substance: OCTREOTIDE ACETATE
     Indication: OFF LABEL USE
     Dosage: 20 MG, QMO
     Dates: start: 201408
  4. ORLISTAT [Concomitant]
     Active Substance: ORLISTAT
     Dosage: 120 MG, UNK
     Route: 048
  5. SANDOSTATIN LAR DEPOT [Suspect]
     Active Substance: OCTREOTIDE ACETATE
     Indication: NEOPLASM PROPHYLAXIS
     Dosage: 30 MG, QMO
     Dates: end: 201407
  6. FLUOXETINE [Concomitant]
     Active Substance: FLUOXETINE\FLUOXETINE HYDROCHLORIDE
     Indication: ANXIETY
     Dosage: 2 DF, DAILY
     Route: 048

REACTIONS (7)
  - Vitamin D deficiency [Recovering/Resolving]
  - Malaise [Recovering/Resolving]
  - Dysstasia [Recovering/Resolving]
  - Anaemia [Recovering/Resolving]
  - Nausea [Recovering/Resolving]
  - Dizziness [Recovering/Resolving]
  - Immunodeficiency [Recovering/Resolving]

NARRATIVE: CASE EVENT DATE: 201312
